FAERS Safety Report 6709979-6 (Version None)
Quarter: 2010Q2

REPORT INFORMATION
  Report Type: 
  Country: None (occurrence: None)
  Receive Date: 20100429
  Receipt Date: 20100414
  Transmission Date: 20101027
  Serious: Yes (Death, Hospitalization)
  Sender: FDA-Public Use
  Company Number: 2010001384

PATIENT
  Age: 78 Year
  Sex: Male

DRUGS (3)
  1. ERLOTINIB (ERLOTINIB) (TABLET) (ERLOTINIB) [Suspect]
     Indication: LUNG NEOPLASM MALIGNANT
     Dosage: 150 MG, ORAL
     Route: 048
  2. PACLITAXEL [Suspect]
     Indication: LUNG NEOPLASM MALIGNANT
  3. CARBOPLATIN [Suspect]
     Indication: LUNG NEOPLASM MALIGNANT

REACTIONS (7)
  - CARDIAC FAILURE [None]
  - CONJUNCTIVAL DISORDER [None]
  - FALL [None]
  - ILL-DEFINED DISORDER [None]
  - ORAL MUCOSA EROSION [None]
  - RIB FRACTURE [None]
  - URINARY TRACT INFECTION [None]
